FAERS Safety Report 21134219 (Version 2)
Quarter: 2022Q3

REPORT INFORMATION
  Report Type: Report from Study
  Country: TH (occurrence: TH)
  Receive Date: 20220726
  Receipt Date: 20220804
  Transmission Date: 20221027
  Serious: No
  Sender: FDA-Public Use
  Company Number: TH-NOVARTISPH-NVSC2021TH236575

PATIENT
  Sex: Female

DRUGS (4)
  1. ELTROMBOPAG OLAMINE [Suspect]
     Active Substance: ELTROMBOPAG OLAMINE
     Indication: Aplastic anaemia
     Dosage: 25 MG (1 TABLET BEFORE BREAKFAST 2 HOURS)
     Route: 048
     Dates: start: 20210909
  2. ELTROMBOPAG OLAMINE [Suspect]
     Active Substance: ELTROMBOPAG OLAMINE
     Dosage: 25 MG (2 TABLET, BEFORE BREAKFAST 2 HOURS)
     Route: 065
  3. CYCLOSPORINE [Suspect]
     Active Substance: CYCLOSPORINE
     Indication: Product used for unknown indication
     Dosage: 100 MG (1 CAPSULE, AT 08: 00 AM)
     Route: 065
  4. CYCLOSPORINE [Suspect]
     Active Substance: CYCLOSPORINE
     Dosage: 25 MG (2 CAPSULE, AT 08: 00 PM)
     Route: 065

REACTIONS (1)
  - Incorrect dose administered [Unknown]
